FAERS Safety Report 9868582 (Version 2)
Quarter: 2014Q2

REPORT INFORMATION
  Report Type: Spontaneous
  Country: US (occurrence: US)
  Receive Date: 20140204
  Receipt Date: 20140417
  Transmission Date: 20141212
  Serious: No
  Sender: FDA-Public Use
  Company Number: US-PFIZER INC-2014031918

PATIENT
  Age: 69 Year
  Sex: Female

DRUGS (2)
  1. MEDROL [Suspect]
     Dosage: UNK
  2. CEFEPIME HYDROCHLORIDE [Suspect]
     Dosage: UNK

REACTIONS (1)
  - Drug hypersensitivity [Unknown]
